FAERS Safety Report 23941161 (Version 1)
Quarter: 2024Q2

REPORT INFORMATION
  Report Type: Spontaneous
  Country: CN (occurrence: CN)
  Receive Date: 20240605
  Receipt Date: 20240605
  Transmission Date: 20240716
  Serious: Yes (Hospitalization, Other)
  Sender: FDA-Public Use
  Company Number: CN-PFIZER INC-PV202400072760

PATIENT
  Age: 3 Year
  Sex: Male

DRUGS (1)
  1. ZITHROMAX [Suspect]
     Active Substance: AZITHROMYCIN DIHYDRATE
     Indication: Infection
     Dosage: 0.140 G, 1X/DAY
     Route: 048
     Dates: start: 20240531, end: 20240601

REACTIONS (5)
  - Vomiting [Recovering/Resolving]
  - Oliguria [Recovering/Resolving]
  - Dehydration [Recovering/Resolving]
  - Dry skin [Recovering/Resolving]
  - Lip dry [Recovering/Resolving]

NARRATIVE: CASE EVENT DATE: 20240531
